FAERS Safety Report 7976833-1 (Version None)
Quarter: 2011Q4

REPORT INFORMATION
  Report Type: 
  Country: None (occurrence: None)
  Receive Date: 20111213
  Receipt Date: 20111109
  Transmission Date: 20120403
  Serious: No
  Sender: FDA-Public Use
  Company Number: US-AMGEN-USASP2011058973

PATIENT
  Age: 40 Year
  Sex: Female

DRUGS (1)
  1. ENBREL [Suspect]
     Indication: RHEUMATOID ARTHRITIS
     Dosage: 50 MG, QWK
     Dates: start: 20100813

REACTIONS (6)
  - OEDEMA PERIPHERAL [None]
  - MYALGIA [None]
  - WEIGHT INCREASED [None]
  - MUSCLE SPASMS [None]
  - RHEUMATOID ARTHRITIS [None]
  - LYMPH NODE PAIN [None]
